FAERS Safety Report 9820044 (Version 1)
Quarter: 2013Q4

REPORT INFORMATION
  Report Type: Spontaneous
  Country: US (occurrence: None)
  Receive Date: 20131223
  Receipt Date: 20131223
  Transmission Date: 20140711
  Serious: Yes (Other)
  Sender: FDA-Public Use
  Company Number: 220956

PATIENT
  Age: 64 Year
  Sex: Female

DRUGS (4)
  1. PICATO GEL [Suspect]
     Indication: ACTINIC KERATOSIS
     Route: 061
  2. PAXIL (PAROXETINE HYDROCHLORIDE) [Concomitant]
  3. METOPROLOL (METOPROLOL) [Concomitant]
  4. RECLAST (ZOLEDRONIC ACID) [Concomitant]

REACTIONS (8)
  - Orthopnoea [None]
  - Oropharyngeal pain [None]
  - Application site exfoliation [None]
  - Application site erythema [None]
  - Application site pruritus [None]
  - Application site swelling [None]
  - Drug administered at inappropriate site [None]
  - Incorrect drug administration duration [None]
